FAERS Safety Report 8502779-6 (Version None)
Quarter: 2012Q3

REPORT INFORMATION
  Report Type: 
  Country: None (occurrence: None)
  Receive Date: 20120711
  Receipt Date: 20120705
  Transmission Date: 20120928
  Serious: Yes (Hospitalization, Other)
  Sender: FDA-Public Use
  Company Number: DE-B.I. PHARMACEUTICALS,INC./RIDGEFIELD-2012-DE-01413DE

PATIENT
  Sex: Female
  Weight: 71 kg

DRUGS (14)
  1. PRADAXA [Suspect]
     Dosage: 220 MG
     Dates: start: 20120605
  2. PRADAXA [Suspect]
     Indication: ATRIAL FIBRILLATION
     Dosage: 220 MG
     Dates: start: 20120503, end: 20120512
  3. ASCORBIC ACID [Concomitant]
  4. LEVOTHYROXINE SODIUM [Concomitant]
  5. HEPARIN [Concomitant]
  6. RAMIPRIL [Concomitant]
  7. METOPROLOL SUCCINATE [Concomitant]
  8. TORSEMIDE [Concomitant]
  9. SYMBICORT [Concomitant]
  10. DIGITOXIN TAB [Concomitant]
  11. ASPIRIN [Concomitant]
  12. SPIRONOLACTONE [Concomitant]
  13. XARELTO [Concomitant]
     Dosage: 20 MG
     Dates: start: 20120326
  14. DEKRISTOL [Concomitant]

REACTIONS (4)
  - DRUG ADMINISTRATION ERROR [None]
  - DIZZINESS [None]
  - CIRCULATORY COLLAPSE [None]
  - OEDEMA PERIPHERAL [None]
